FAERS Safety Report 5982834-5 (Version None)
Quarter: 2008Q4

REPORT INFORMATION
  Report Type: 
  Country: None (occurrence: None)
  Receive Date: 20081125
  Receipt Date: 20080312
  Transmission Date: 20090506
  Serious: Yes (Life-Threatening, Hospitalization, Other)
  Sender: FDA-Public Use
  Company Number: 2008MP000065

PATIENT
  Age: 38 Year
  Sex: Male

DRUGS (1)
  1. GLIADEL [Suspect]
     Indication: ANAPLASTIC ASTROCYTOMA
     Dosage: 1X;ICER
     Dates: start: 20080201

REACTIONS (4)
  - BRAIN OEDEMA [None]
  - DRUG ADMINISTRATION ERROR [None]
  - MENINGITIS [None]
  - OFF LABEL USE [None]
